FAERS Safety Report 7999191-5 (Version None)
Quarter: 2011Q4

REPORT INFORMATION
  Report Type: 
  Country: None (occurrence: None)
  Receive Date: 20111221
  Receipt Date: 20111216
  Transmission Date: 20120403
  Serious: Yes (Hospitalization, Other)
  Sender: FDA-Public Use
  Company Number: US-ABBOTT-11P-163-0884395-00

PATIENT
  Sex: Female
  Weight: 85.352 kg

DRUGS (3)
  1. HUMIRA [Suspect]
     Indication: RHEUMATOID ARTHRITIS
     Dates: start: 20090101
  2. VERAPAMIL [Concomitant]
     Indication: HYPERTENSION
  3. AVAPRO [Concomitant]
     Indication: HYPERTENSION

REACTIONS (6)
  - CHOLELITHIASIS [None]
  - FALL [None]
  - ABDOMINAL PAIN [None]
  - BACK PAIN [None]
  - ANAEMIA [None]
  - INFECTIOUS PERITONITIS [None]
